FAERS Safety Report 5580275-6 (Version None)
Quarter: 2008Q1

REPORT INFORMATION
  Report Type: 
  Country: None (occurrence: None)
  Receive Date: 20080103
  Receipt Date: 20071228
  Transmission Date: 20080703
  Serious: Yes (Disabling)
  Sender: FDA-Public Use
  Company Number: B0499076A

PATIENT
  Age: 42 Year
  Sex: Female

DRUGS (12)
  1. SUMATRIPTAN SUCCINATE [Suspect]
     Indication: HEADACHE
     Route: 048
  2. ESTRADIOL [Suspect]
     Route: 062
  3. ZOMIG [Concomitant]
     Indication: DRUG USE FOR UNKNOWN INDICATION
     Route: 048
  4. PREDONINE [Concomitant]
  5. CHINESE MEDICINE [Concomitant]
     Route: 048
  6. HALCION [Concomitant]
     Route: 048
  7. JUVELA N [Concomitant]
     Route: 048
  8. ONEALFA [Concomitant]
     Route: 048
  9. SOLETON [Concomitant]
     Route: 048
  10. LIPITOR [Concomitant]
     Route: 048
  11. MUCOSTA [Concomitant]
     Route: 048
  12. ASPIRIN [Concomitant]

REACTIONS (7)
  - ARTHRALGIA [None]
  - DYSPHONIA [None]
  - MUSCULOSKELETAL STIFFNESS [None]
  - PAIN [None]
  - PHARYNGOLARYNGEAL PAIN [None]
  - POLYMYOSITIS [None]
  - RHEUMATOID FACTOR POSITIVE [None]
